FAERS Safety Report 5274329-1 (Version None)
Quarter: 2007Q1

REPORT INFORMATION
  Report Type: 
  Country: None (occurrence: None)
  Receive Date: 20070323
  Receipt Date: 20070313
  Transmission Date: 20070707
  Serious: Yes (Other)
  Sender: FDA-Public Use
  Company Number: FR-PFIZER INC-2007014317

PATIENT
  Sex: Female
  Weight: 53 kg

DRUGS (4)
  1. LYRICA [Suspect]
     Indication: NEURALGIA
  2. HEMIGOXINE NATIVELLE [Concomitant]
     Indication: ARRHYTHMIA
     Route: 048
  3. TRANXENE [Concomitant]
     Indication: ANXIETY
     Route: 048
  4. SPIRONOLACTONE [Concomitant]
     Indication: HYPERTENSION
     Route: 048

REACTIONS (1)
  - FACIAL PALSY [None]
